FAERS Safety Report 5972926-9 (Version None)
Quarter: 2008Q4

REPORT INFORMATION
  Report Type: 
  Country: None (occurrence: None)
  Receive Date: 20081201
  Receipt Date: 20081120
  Transmission Date: 20090506
  Serious: Yes (Hospitalization, Other)
  Sender: FDA-Public Use
  Company Number: PHHY2008GB27143

PATIENT
  Sex: Male

DRUGS (4)
  1. CLOZARIL [Suspect]
     Indication: SCHIZOPHRENIA
     Dosage: 100 MG MANE, 300 MG NOCTE
     Dates: start: 20081006, end: 20081025
  2. QUETIAPINE FUMARATE [Concomitant]
     Dosage: 100 MG DAILY
     Route: 048
     Dates: start: 20080927
  3. HALOPERIDOL [Concomitant]
     Dosage: 5-10 MG DAILY
     Dates: start: 20080927
  4. LORAZEPAM [Concomitant]
     Indication: AGITATION
     Dosage: 1-2MG DAILY PRN (UP TO 4MG)
     Route: 048

REACTIONS (11)
  - ALANINE AMINOTRANSFERASE INCREASED [None]
  - BLOOD COUNT [None]
  - BLOOD CREATINE PHOSPHOKINASE INCREASED [None]
  - BLOOD CULTURE POSITIVE [None]
  - GAMMA-GLUTAMYLTRANSFERASE INCREASED [None]
  - HYPOTENSION [None]
  - INFECTION [None]
  - MALAISE [None]
  - PYREXIA [None]
  - TACHYCARDIA [None]
  - WHITE BLOOD CELL COUNT INCREASED [None]
